FAERS Safety Report 12851753 (Version 1)
Quarter: 2016Q4

REPORT INFORMATION
  Report Type: Spontaneous
  Country: US (occurrence: US)
  Receive Date: 20161017
  Receipt Date: 20161017
  Transmission Date: 20170207
  Serious: No
  Sender: FDA-Public Use
  Company Number: US-JNJFOC-20150823753

PATIENT
  Sex: Male

DRUGS (16)
  1. LEVOTHYROXINE. [Concomitant]
     Active Substance: LEVOTHYROXINE
  2. PAXIL [Concomitant]
     Active Substance: PAROXETINE HYDROCHLORIDE
  3. MONTELUKAST [Concomitant]
     Active Substance: MONTELUKAST SODIUM
  4. LATANOPROST. [Concomitant]
     Active Substance: LATANOPROST
  5. SIMVASTATIN. [Concomitant]
     Active Substance: SIMVASTATIN
  6. LANTUS [Concomitant]
     Active Substance: INSULIN GLARGINE
  7. TRAMADOL. [Concomitant]
     Active Substance: TRAMADOL
  8. PROBIOTIC [Concomitant]
     Active Substance: PROBIOTICS NOS
  9. PROTONIX [Concomitant]
     Active Substance: PANTOPRAZOLE SODIUM
  10. PAROXETINE. [Concomitant]
     Active Substance: PAROXETINE
  11. FLUCONAZOLE. [Concomitant]
     Active Substance: FLUCONAZOLE
  12. IPRATROPIUM [Concomitant]
     Active Substance: IPRATROPIUM
  13. BRIOBACEPT [Concomitant]
  14. INSULIN ASPART [Concomitant]
     Active Substance: INSULIN ASPART
  15. IMBRUVICA [Suspect]
     Active Substance: IBRUTINIB
     Indication: CHRONIC LYMPHOCYTIC LEUKAEMIA
     Route: 048
     Dates: start: 20150401
  16. LANSOPRAZOLE. [Concomitant]
     Active Substance: LANSOPRAZOLE

REACTIONS (7)
  - Rash [Unknown]
  - Red blood cell count decreased [Unknown]
  - Staphylococcal infection [Not Recovered/Not Resolved]
  - Blister [Unknown]
  - Pruritus [Unknown]
  - Skin fissures [Unknown]
  - Acne [Recovered/Resolved]

NARRATIVE: CASE EVENT DATE: 2015
